FAERS Safety Report 7220735-5 (Version None)
Quarter: 2011Q1

REPORT INFORMATION
  Report Type: 
  Country: None (occurrence: None)
  Receive Date: 20110111
  Receipt Date: 20110103
  Transmission Date: 20110831
  Serious: Yes (Hospitalization)
  Sender: FDA-Public Use
  Company Number: US-GILEAD-2010-0034379

PATIENT
  Sex: Female
  Weight: 40 kg

DRUGS (25)
  1. SODIUM CHLORIDE [Concomitant]
  2. VITAMIN D [Concomitant]
  3. PHYTONADIONE [Concomitant]
  4. MULTI-VITAMINS [Concomitant]
  5. METOCLOPRAMIDE [Concomitant]
  6. PANCRELIPASE [Concomitant]
  7. HUMALOG [Concomitant]
  8. GLUCAGON [Concomitant]
  9. FLUTICASONE PROPIONATE [Concomitant]
  10. FERROUS SULFATE [Concomitant]
  11. COLISTIMETHATE SODIUM [Concomitant]
  12. MORPHINE SULFATE [Concomitant]
  13. PULMOZYME [Concomitant]
  14. OMEPRAZOLE [Concomitant]
  15. SENNA [Concomitant]
  16. CELECOXIB [Concomitant]
  17. INTAL [Concomitant]
  18. AZITHROMYCIN [Concomitant]
  19. VITAMIN A [Concomitant]
  20. PREDNISONE [Concomitant]
  21. MONTELUKAST [Concomitant]
  22. AZTREONAM [Suspect]
     Indication: CYSTIC FIBROSIS
     Route: 055
     Dates: start: 20101203, end: 20101222
  23. TRIAMCINOLONE [Concomitant]
  24. ALBUTEROL [Concomitant]
  25. CETRIZINE [Concomitant]

REACTIONS (1)
  - PNEUMOTHORAX [None]
